FAERS Safety Report 5305886-4 (Version None)
Quarter: 2007Q2

REPORT INFORMATION
  Report Type: 
  Country: None (occurrence: None)
  Receive Date: 20070416
  Receipt Date: 20070328
  Transmission Date: 20071010
  Serious: Yes (Death, Congenital Anomaly, Other)
  Sender: FDA-Public Use
  Company Number: SPV1-2007-00929

PATIENT
  Age: 6 Week
  Sex: 0
  Weight: 3.8 kg

DRUGS (1)
  1. CARBAMAZEPINE [Suspect]
     Indication: EPILEPSY
     Dosage: 900 MG DAILY, TRANSPLACENTAL
     Route: 064

REACTIONS (12)
  - ARTERIOVENOUS MALFORMATION [None]
  - CSF PROTEIN INCREASED [None]
  - DRUG EXPOSURE DURING PREGNANCY [None]
  - DYSMORPHISM [None]
  - FOETAL ANTICONVULSANT SYNDROME [None]
  - HAEMATOMA [None]
  - HAEMORRHAGE INTRACRANIAL [None]
  - HYDROCEPHALUS [None]
  - HYPERTELORISM OF ORBIT [None]
  - INTRAVENTRICULAR HAEMORRHAGE [None]
  - MICROGNATHIA [None]
  - RED BLOOD CELLS CSF POSITIVE [None]
